FAERS Safety Report 20829559 (Version 1)
Quarter: 2022Q2

REPORT INFORMATION
  Report Type: Spontaneous
  Country: US (occurrence: US)
  Receive Date: 20220513
  Receipt Date: 20220513
  Transmission Date: 20220720
  Serious: No
  Sender: FDA-Public Use
  Company Number: US-PFIZER INC-202200643098

PATIENT
  Age: 69 Year
  Sex: Female
  Weight: 74.84 kg

DRUGS (2)
  1. CYTOMEL [Suspect]
     Active Substance: LIOTHYRONINE SODIUM
     Indication: Hypopituitarism
     Dosage: 5 UG, 1X/DAY (ONCE A DAY IN THE MORNING ON EMPTY STOMACH)
  2. SYNTHROID [Concomitant]
     Active Substance: LEVOTHYROXINE SODIUM
     Dosage: UNK

REACTIONS (2)
  - Feeling abnormal [Unknown]
  - Off label use [Unknown]

NARRATIVE: CASE EVENT DATE: 20070101
